FAERS Safety Report 5927689-X (Version None)
Quarter: 2008Q4

REPORT INFORMATION
  Report Type: 
  Country: None (occurrence: None)
  Receive Date: 20081023
  Receipt Date: 20081016
  Transmission Date: 20090506
  Serious: Yes (Hospitalization)
  Sender: FDA-Public Use
  Company Number: US-BAYER-200836091NA

PATIENT
  Age: 40 Year
  Sex: Female
  Weight: 77 kg

DRUGS (9)
  1. SORAFENIB [Suspect]
     Indication: CERVIX CARCINOMA
     Dosage: TOTAL DAILY DOSE: 400 MG  UNIT DOSE: 200 MG
     Route: 048
     Dates: start: 20080529, end: 20081011
  2. AVASTIN [Suspect]
     Indication: CERVIX CARCINOMA
     Route: 042
     Dates: start: 20080529, end: 20081009
  3. LEXAPRO [Concomitant]
     Indication: DEPRESSION
     Dosage: TOTAL DAILY DOSE: 10 MG
     Dates: start: 20070101
  4. VITAMIN B [Concomitant]
     Indication: PROPHYLAXIS
     Dosage: TOTAL DAILY DOSE: 300 U
     Route: 048
     Dates: start: 20080525
  5. LEVAQUIN [Concomitant]
     Indication: PROPHYLAXIS URINARY TRACT INFECTION
     Dosage: TOTAL DAILY DOSE: 500 MG
     Route: 048
     Dates: start: 20080811, end: 20080817
  6. LEVAQUIN [Concomitant]
     Dosage: TOTAL DAILY DOSE: 500 MG
     Route: 048
     Dates: start: 20080529, end: 20080609
  7. ATIVAN [Concomitant]
     Indication: ANXIETY
     Route: 048
     Dates: start: 20070801
  8. XANAX [Concomitant]
     Indication: ANXIETY
     Route: 048
     Dates: start: 20080223
  9. ARANESP [Concomitant]
     Indication: ANAEMIA
     Route: 058
     Dates: start: 20081009

REACTIONS (1)
  - DEEP VEIN THROMBOSIS [None]
